FAERS Safety Report 10330274 (Version 1)
Quarter: 2014Q3

REPORT INFORMATION
  Report Type: Spontaneous
  Country: US (occurrence: US)
  Receive Date: 20140721
  Receipt Date: 20140721
  Transmission Date: 20150326
  Serious: Yes (Hospitalization, Other)
  Sender: FDA-Public Use
  Company Number: PHHY2014US087556

PATIENT
  Age: 65 Year
  Sex: Male

DRUGS (1)
  1. ISONIAZID. [Suspect]
     Active Substance: ISONIAZID
     Indication: ANTIBIOTIC PROPHYLAXIS

REACTIONS (19)
  - Jaundice [Recovering/Resolving]
  - Azotaemia [Recovering/Resolving]
  - Encephalopathy [Recovering/Resolving]
  - Chronic hepatic failure [Recovering/Resolving]
  - Fatigue [Recovering/Resolving]
  - Nausea [Recovering/Resolving]
  - Hepatotoxicity [Unknown]
  - Hypotension [Recovering/Resolving]
  - Hepatic function abnormal [Recovering/Resolving]
  - Abdominal compartment syndrome [Recovering/Resolving]
  - Fluid overload [Recovering/Resolving]
  - Oedema peripheral [Recovering/Resolving]
  - Peritonitis bacterial [Recovering/Resolving]
  - Renal failure [Recovering/Resolving]
  - Ascites [Recovering/Resolving]
  - Chronic hepatitis [Recovering/Resolving]
  - Acidosis [Recovering/Resolving]
  - Hepatic necrosis [Recovering/Resolving]
  - Haematoma [Recovering/Resolving]
